FAERS Safety Report 8806881 (Version 1)
Quarter: 2012Q4

REPORT INFORMATION
  Report Type: Spontaneous
  Country: ES (occurrence: None)
  Receive Date: 20120919
  Receipt Date: 20120919
  Transmission Date: 20130627
  Serious: Yes (Hospitalization, Other)
  Sender: FDA-Public Use
  Company Number: 2012MA010946

PATIENT
  Age: 25 Week
  Weight: .94 kg

DRUGS (1)
  1. FEVERALL [Suspect]
     Route: 042

REACTIONS (3)
  - Toxicity to various agents [None]
  - Accidental overdose [None]
  - No adverse event [None]
